FAERS Safety Report 9466541 (Version 1)
Quarter: 2013Q3

REPORT INFORMATION
  Report Type: Spontaneous
  Country: US (occurrence: None)
  Receive Date: 20130816
  Receipt Date: 20130816
  Transmission Date: 20140515
  Serious: No
  Sender: FDA-Public Use
  Company Number: None

PATIENT
  Age: 68 Year
  Sex: Male

DRUGS (1)
  1. NEXAVAR 200MG BAYER [Suspect]
     Route: 048
     Dates: start: 20130803

REACTIONS (5)
  - Rash [None]
  - Genital rash [None]
  - Gait disturbance [None]
  - Abdominal pain upper [None]
  - Flatulence [None]
